FAERS Safety Report 18237978 (Version 2)
Quarter: 2020Q3

REPORT INFORMATION
  Report Type: Spontaneous
  Country: US (occurrence: US)
  Receive Date: 20200907
  Receipt Date: 20200920
  Transmission Date: 20201103
  Serious: Yes (Hospitalization)
  Sender: FDA-Public Use
  Company Number: US-TEVA-2020-US-1824664

PATIENT
  Age: 66 Year
  Sex: Female

DRUGS (2)
  1. COTRIMOXAZOLE [Interacting]
     Active Substance: SULFAMETHOXAZOLE\TRIMETHOPRIM
     Indication: PYELONEPHRITIS
     Dosage: 2 DOSAGE FORMS DAILY; DOUBLE STRENGTH TRIMETHOPRIM/SULFAMETHOXAZOLE 160/800MG
     Route: 065
  2. WARFARIN [Suspect]
     Active Substance: WARFARIN
     Indication: PROPHYLAXIS
     Dosage: 5 MILLIGRAM DAILY;
     Route: 048

REACTIONS (3)
  - Drug interaction [Recovering/Resolving]
  - Rectal haemorrhage [Recovering/Resolving]
  - Epistaxis [Recovering/Resolving]
